FAERS Safety Report 6850130-X (Version None)
Quarter: 2010Q3

REPORT INFORMATION
  Report Type: 
  Country: None (occurrence: None)
  Receive Date: 20100716
  Receipt Date: 20071013
  Transmission Date: 20110219
  Serious: No
  Sender: FDA-Public Use
  Company Number: US-PFIZER INC-2007086168

PATIENT
  Sex: Female
  Weight: 63.636 kg

DRUGS (3)
  1. CHANTIX [Suspect]
     Indication: SMOKING CESSATION THERAPY
     Dates: start: 20071008
  2. MICARDIS [Concomitant]
     Indication: BLOOD PRESSURE
  3. DRUG, UNSPECIFIED [Concomitant]
     Indication: BLOOD PRESSURE

REACTIONS (1)
  - NAUSEA [None]
